FAERS Safety Report 7552202-3 (Version None)
Quarter: 2011Q2

REPORT INFORMATION
  Report Type: 
  Country: None (occurrence: None)
  Receive Date: 20110616
  Receipt Date: 20110608
  Transmission Date: 20111010
  Serious: Yes (Other)
  Sender: FDA-Public Use
  Company Number: US-MERCK-1106USA01036

PATIENT
  Age: 67 Year
  Sex: Female

DRUGS (4)
  1. FOSAMAX [Suspect]
     Indication: OSTEOPOROSIS
     Route: 048
     Dates: start: 20050101, end: 20090801
  2. THORAZINE [Concomitant]
     Route: 065
  3. ATENOLOL [Concomitant]
     Route: 065
  4. LIPITOR [Concomitant]
     Route: 065

REACTIONS (5)
  - ARTHRITIS [None]
  - AORTIC ANEURYSM [None]
  - PELVIC FRACTURE [None]
  - SENSATION OF PRESSURE [None]
  - FORMICATION [None]
